FAERS Safety Report 23679715 (Version 1)
Quarter: 2024Q1

REPORT INFORMATION
  Report Type: Spontaneous
  Country: BE (occurrence: BE)
  Receive Date: 20240327
  Receipt Date: 20240327
  Transmission Date: 20240409
  Serious: Yes (Other)
  Sender: FDA-Public Use
  Company Number: BE-SUN PHARMACEUTICAL INDUSTRIES LTD-2024R1-438226

PATIENT
  Age: 43 Year
  Sex: Male

DRUGS (9)
  1. SULFAMETHOXAZOLE\TRIMETHOPRIM [Suspect]
     Active Substance: SULFAMETHOXAZOLE\TRIMETHOPRIM
     Indication: Nocardiosis
     Dosage: UNK
     Route: 065
  2. AMPHOTERICIN B [Suspect]
     Active Substance: AMPHOTERICIN B
     Indication: Cerebral nocardiosis
     Dosage: UNK
     Route: 065
  3. AMPHOTERICIN B [Suspect]
     Active Substance: AMPHOTERICIN B
     Indication: Aspergillus infection
  4. TACROLIMUS [Suspect]
     Active Substance: TACROLIMUS
     Indication: Anti-infective therapy
     Dosage: UNK
     Route: 065
  5. MEROPENEM [Suspect]
     Active Substance: MEROPENEM
     Indication: Cerebral nocardiosis
     Dosage: UNK
     Route: 065
  6. MEROPENEM [Suspect]
     Active Substance: MEROPENEM
     Indication: Aspergillus infection
  7. CASPOFUNGIN [Suspect]
     Active Substance: CASPOFUNGIN
     Indication: Aspergillus infection
     Dosage: UNK
     Route: 065
  8. CASPOFUNGIN [Suspect]
     Active Substance: CASPOFUNGIN
     Indication: Cerebral nocardiosis
  9. POSACONAZOLE [Suspect]
     Active Substance: POSACONAZOLE
     Indication: Anti-infective therapy
     Dosage: UNK
     Route: 065

REACTIONS (4)
  - Renal failure [Recovered/Resolved]
  - Pancytopenia [Recovered/Resolved]
  - Microangiopathic haemolytic anaemia [Recovered/Resolved]
  - Therapy partial responder [Unknown]
